FAERS Safety Report 8572293-0 (Version None)
Quarter: 2012Q2

REPORT INFORMATION
  Report Type: 
  Country: None (occurrence: None)
  Receive Date: 20120418
  Receipt Date: 20090826
  Transmission Date: 20120825
  Serious: Yes (Other)
  Sender: FDA-Public Use
  Company Number: PHEH2009US09915

PATIENT
  Sex: Female

DRUGS (5)
  1. SYNTHROID [Concomitant]
  2. ZETIA [Concomitant]
  3. POTASSIUM [Concomitant]
  4. FENOFIBRATE [Concomitant]
  5. DIOVAN HCT [Suspect]
     Dosage: 160 MG VAL/12.5 MG HCT

REACTIONS (4)
  - SWELLING FACE [None]
  - LIP SWELLING [None]
  - FATIGUE [None]
  - SWELLING [None]
